FAERS Safety Report 9766156 (Version 1)
Quarter: 2013Q4

REPORT INFORMATION
  Report Type: Spontaneous
  Country: US (occurrence: US)
  Receive Date: 20131217
  Receipt Date: 20131217
  Transmission Date: 20140711
  Serious: No
  Sender: FDA-Public Use
  Company Number: US-GLAXOSMITHKLINE-A1020392A

PATIENT
  Age: 65 Year
  Sex: Male

DRUGS (4)
  1. VOTRIENT [Suspect]
     Indication: MALIGNANT URINARY TRACT NEOPLASM
     Dosage: 800MG PER DAY
     Route: 048
     Dates: start: 20130221, end: 20130414
  2. DOCUSATE [Concomitant]
  3. OXYCONTIN [Concomitant]
  4. DEXAMETHASONE [Concomitant]

REACTIONS (1)
  - Hypoaesthesia [Not Recovered/Not Resolved]
